FAERS Safety Report 11761940 (Version 1)
Quarter: 2015Q4

REPORT INFORMATION
  Report Type: Spontaneous
  Country: US (occurrence: US)
  Receive Date: 20151120
  Receipt Date: 20151120
  Transmission Date: 20160304
  Serious: No
  Sender: FDA-Public Use
  Company Number: US-ELI_LILLY_AND_COMPANY-US201210007040

PATIENT
  Age: 83 Year
  Sex: Female
  Weight: 42.17 kg

DRUGS (1)
  1. FORTEO [Suspect]
     Active Substance: TERIPARATIDE
     Indication: OSTEOPOROSIS
     Dosage: 20 UG, QD
     Dates: start: 20121016, end: 201301

REACTIONS (15)
  - Hip deformity [Unknown]
  - Sensory disturbance [Unknown]
  - Injury associated with device [Unknown]
  - Cholelithiasis [Unknown]
  - Gait disturbance [Unknown]
  - Peripheral swelling [Unknown]
  - Injection site bruising [Unknown]
  - Gastrooesophageal reflux disease [Unknown]
  - Pain in extremity [Recovered/Resolved]
  - Constipation [Unknown]
  - Injection site pain [Unknown]
  - Drug dose omission [Unknown]
  - Intentional product misuse [Unknown]
  - Pain in extremity [Not Recovered/Not Resolved]
  - Fatigue [Unknown]

NARRATIVE: CASE EVENT DATE: 2012
